FAERS Safety Report 10084218 (Version 2)
Quarter: 2014Q2

REPORT INFORMATION
  Report Type: Spontaneous
  Country: US (occurrence: US)
  Receive Date: 20140417
  Receipt Date: 20140527
  Transmission Date: 20141212
  Serious: Yes (Hospitalization)
  Sender: FDA-Public Use
  Company Number: US-BAYER-2014-056144

PATIENT
  Age: 17 Year
  Sex: Female
  Weight: 71.66 kg

DRUGS (12)
  1. MIRENA [Suspect]
     Dosage: 20 MCG/24HR, CONT
     Route: 015
     Dates: start: 20120315, end: 20120425
  2. BACTRIM [CO-TRIMOXAZOLE] [Concomitant]
     Indication: URINARY TRACT INFECTION
     Dosage: 800 -160 MG
     Route: 048
     Dates: start: 20120119
  3. FERROUS SULFATE [Concomitant]
     Dosage: 325 MG, UNK
     Route: 048
     Dates: start: 20120221
  4. NORCO [Concomitant]
     Indication: PAIN
     Dosage: 10-325 MG
     Route: 048
     Dates: start: 20120221
  5. PROCTOCREAM-HC [Concomitant]
     Dosage: 2.5% APPLY AFTER BOWEL MOVEMENT AND [AS NEEDED]
     Route: 061
     Dates: start: 20120221
  6. PRENATAL VITAMINS [VIT C,B5,B12,D2,B3,B6,RETINOL PALMIT,B2,B1 MONO [Concomitant]
     Dosage: UNK
     Route: 048
     Dates: start: 20120221
  7. IBUPROFEN AL [Concomitant]
     Indication: PAIN
     Dosage: UNK
     Route: 048
  8. DOCUSATE [Concomitant]
     Indication: CONSTIPATION PROPHYLAXIS
     Route: 048
  9. DIFLUCAN [Concomitant]
     Indication: VAGINAL DISORDER
     Dosage: 150 MG, UNK
     Route: 048
     Dates: start: 20120319
  10. DIFLUCAN [Concomitant]
     Indication: CANDIDA INFECTION
  11. ZOFRAN [Concomitant]
  12. TORADOL [Concomitant]

REACTIONS (4)
  - Uterine perforation [None]
  - Injury [None]
  - Pain [None]
  - Emotional distress [None]
